FAERS Safety Report 5389411-8 (Version None)
Quarter: 2007Q3

REPORT INFORMATION
  Report Type: 
  Country: None (occurrence: None)
  Receive Date: 20070717
  Receipt Date: 20070712
  Transmission Date: 20080115
  Serious: Yes (Death)
  Sender: FDA-Public Use
  Company Number: JP-ASTRAZENECA-2007AP03804

PATIENT
  Age: 29339 Day
  Sex: Female

DRUGS (13)
  1. IRESSA [Suspect]
     Indication: NON-SMALL CELL LUNG CANCER
     Route: 048
     Dates: start: 20070411, end: 20070622
  2. METHYCOBAL [Suspect]
     Indication: HYPOVITAMINOSIS
     Route: 048
     Dates: start: 20060904, end: 20070622
  3. GASTER D [Suspect]
     Indication: GASTRITIS
     Route: 048
     Dates: start: 20070313, end: 20070622
  4. STOMACHICS [Concomitant]
  5. DIGESTIVES [Concomitant]
  6. DECADRON [Concomitant]
     Indication: INTRACRANIAL PRESSURE INCREASED
     Route: 048
     Dates: start: 20070313, end: 20070622
  7. CARBOPLATIN [Concomitant]
     Dates: start: 20060301
  8. CARBOPLATIN [Concomitant]
     Dates: start: 20061101
  9. CARBOPLATIN [Concomitant]
     Dates: start: 20070101, end: 20070101
  10. PACLITAXEL [Concomitant]
     Dates: start: 20060301
  11. PACLITAXEL [Concomitant]
     Dates: start: 20061101
  12. PACLITAXEL [Concomitant]
     Dates: start: 20070101, end: 20070101
  13. RADIOTHERAPY [Concomitant]
     Indication: METASTASES TO CENTRAL NERVOUS SYSTEM
     Dosage: TOTAL DOSE: 37.5GY
     Dates: start: 20070313, end: 20070402

REACTIONS (1)
  - TOXIC EPIDERMAL NECROLYSIS [None]
